FAERS Safety Report 7911114-3 (Version None)
Quarter: 2011Q4

REPORT INFORMATION
  Report Type: 
  Country: None (occurrence: None)
  Receive Date: 20111109
  Receipt Date: 20111027
  Transmission Date: 20120403
  Serious: Yes (Other)
  Sender: FDA-Public Use
  Company Number: 1000025238

PATIENT
  Age: 54 Year
  Sex: Male

DRUGS (1)
  1. ESCITALOPRAM [Suspect]
     Indication: CRYING
     Dosage: ORAL
     Route: 048
     Dates: start: 20110918

REACTIONS (6)
  - JOINT CONTRACTURE [None]
  - IMPAIRED WORK ABILITY [None]
  - ANXIETY [None]
  - FEELING ABNORMAL [None]
  - MEMORY IMPAIRMENT [None]
  - MIGRAINE [None]
